FAERS Safety Report 9753030 (Version 1)
Quarter: 2013Q4

REPORT INFORMATION
  Report Type: Spontaneous
  Country: US (occurrence: None)
  Receive Date: 20131211
  Receipt Date: 20131211
  Transmission Date: 20140711
  Serious: Yes (Hospitalization)
  Sender: FDA-Public Use
  Company Number: 2013AP010257

PATIENT
  Age: 35 Year
  Sex: Male

DRUGS (9)
  1. FENTANYL [Suspect]
     Indication: HEADACHE
     Route: 062
  2. HYDROCODONE [Suspect]
     Indication: HEADACHE
  3. TRIAMTERENE [Concomitant]
  4. FLUOXETINE [Concomitant]
  5. VENLAFAXINE [Concomitant]
  6. RAMELTEON [Concomitant]
  7. TEMAZEPAM [Concomitant]
  8. METHYLPHENIDATE [Concomitant]
  9. DEXTROAMPHETAMINE/00016601/ [Concomitant]

REACTIONS (1)
  - Sleep apnoea syndrome [None]
